FAERS Safety Report 19529145 (Version 1)
Quarter: 2021Q3

REPORT INFORMATION
  Report Type: Spontaneous
  Country: CA (occurrence: CA)
  Receive Date: 20210713
  Receipt Date: 20210713
  Transmission Date: 20211014
  Serious: Yes (Other)
  Sender: FDA-Public Use
  Company Number: CA-JNJFOC-20210719697

PATIENT
  Age: 40 Year
  Sex: Male

DRUGS (2)
  1. PENICILLINE [BENZYLPENICILLIN] [Concomitant]
     Active Substance: PENICILLIN G
     Route: 065
  2. REMICADE [Suspect]
     Active Substance: INFLIXIMAB
     Indication: COLITIS ULCERATIVE
     Route: 042

REACTIONS (6)
  - Off label use [Unknown]
  - Heart rate decreased [Unknown]
  - Accident [Unknown]
  - Tooth fracture [Unknown]
  - Pain [Unknown]
  - Intentional product use issue [Unknown]
